FAERS Safety Report 19831676 (Version 2)
Quarter: 2021Q3

REPORT INFORMATION
  Report Type: Spontaneous
  Country: US (occurrence: US)
  Receive Date: 20210914
  Receipt Date: 20210916
  Transmission Date: 20211014
  Serious: No
  Sender: FDA-Public Use
  Company Number: US-VIVUS, INC.-2020V1000248

PATIENT
  Sex: Female
  Weight: 82.17 kg

DRUGS (2)
  1. QSYMIA [Suspect]
     Active Substance: PHENTERMINE HYDROCHLORIDE\TOPIRAMATE
     Indication: WEIGHT DECREASED
     Route: 048
     Dates: end: 20201020
  2. QSYMIA [Suspect]
     Active Substance: PHENTERMINE HYDROCHLORIDE\TOPIRAMATE
     Indication: WEIGHT DECREASED
     Route: 048
     Dates: start: 202009

REACTIONS (7)
  - Nausea [Not Recovered/Not Resolved]
  - Dizziness [Not Recovered/Not Resolved]
  - Vision blurred [Not Recovered/Not Resolved]
  - Fatigue [Not Recovered/Not Resolved]
  - Feeling abnormal [Not Recovered/Not Resolved]
  - Irritability [Not Recovered/Not Resolved]
  - Dysgeusia [Not Recovered/Not Resolved]
